FAERS Safety Report 10730494 (Version 1)
Quarter: 2015Q1

REPORT INFORMATION
  Report Type: Spontaneous
  Country: US (occurrence: None)
  Receive Date: 20150121
  Receipt Date: 20150121
  Transmission Date: 20150721
  Serious: Yes (Other)
  Sender: FDA-Public Use
  Company Number: None

PATIENT
  Age: 63 Year
  Sex: Male
  Weight: 88.91 kg

DRUGS (7)
  1. RYTHMOL [Concomitant]
     Active Substance: PROPAFENONE HYDROCHLORIDE
  2. ALFUZOSIN [Suspect]
     Active Substance: ALFUZOSIN
     Indication: PRODUCT USED FOR UNKNOWN INDICATION
     Dosage: 1 BEFORE BED ONCE DAILY TAKEN BY MOUTH
     Route: 048
     Dates: start: 20150107, end: 20150115
  3. TOPROL XL [Concomitant]
     Active Substance: METOPROLOL SUCCINATE
  4. DIOVAN [Concomitant]
     Active Substance: VALSARTAN
  5. ASPIRIN. [Concomitant]
     Active Substance: ASPIRIN
  6. ZETIA [Concomitant]
     Active Substance: EZETIMIBE
  7. FISH OIL [Concomitant]
     Active Substance: FISH OIL

REACTIONS (8)
  - Sinus disorder [None]
  - Abdominal distension [None]
  - Visual impairment [None]
  - Epistaxis [None]
  - Back pain [None]
  - Asthenia [None]
  - Exercise tolerance decreased [None]
  - Heart rate increased [None]

NARRATIVE: CASE EVENT DATE: 20150106
